FAERS Safety Report 17860675 (Version 4)
Quarter: 2020Q3

REPORT INFORMATION
  Report Type: Spontaneous
  Country: US (occurrence: US)
  Receive Date: 20200604
  Receipt Date: 20200709
  Transmission Date: 20201103
  Serious: Yes (Other)
  Sender: FDA-Public Use
  Company Number: US-SA-2020SA142436

PATIENT

DRUGS (5)
  1. HYDROCODONE/ACETAMINOPHEN [Concomitant]
     Active Substance: ACETAMINOPHEN\HYDROCODONE
  2. KEVZARA [Suspect]
     Active Substance: SARILUMAB
     Dosage: 300 MG, QOW
     Route: 058
     Dates: start: 20191107
  3. ROPINIROLE. [Concomitant]
     Active Substance: ROPINIROLE
     Indication: RESTLESS LEGS SYNDROME
  4. KEVZARA [Suspect]
     Active Substance: SARILUMAB
     Indication: RHEUMATOID ARTHRITIS
     Dosage: 200 MG
     Route: 058
  5. TRAMADOL. [Concomitant]
     Active Substance: TRAMADOL

REACTIONS (7)
  - Thrombosis [Unknown]
  - Incorrect dose administered [Unknown]
  - Fracture [Unknown]
  - Knee operation [Unknown]
  - Arterial rupture [Unknown]
  - Arthralgia [Unknown]
  - Post procedural infection [Unknown]

NARRATIVE: CASE EVENT DATE: 20191107
